FAERS Safety Report 4773029-1 (Version None)
Quarter: 2005Q3

REPORT INFORMATION
  Report Type: 
  Country: None (occurrence: None)
  Receive Date: 20050916
  Receipt Date: 20050903
  Transmission Date: 20060218
  Serious: Yes (Hospitalization, Other)
  Sender: FDA-Public Use
  Company Number: 2005114461

PATIENT
  Sex: Female
  Weight: 99.7913 kg

DRUGS (18)
  1. NEURONTIN [Suspect]
     Indication: PAIN
     Dosage: SEE IMAGE
     Dates: start: 20010701, end: 20030101
  2. NEURONTIN [Suspect]
     Indication: PAIN
     Dosage: SEE IMAGE
     Dates: start: 20050701
  3. DURAGESIC-100 [Suspect]
     Indication: PAIN
     Dosage: 25 MCG, 1 IN 1D
     Dates: start: 20030101
  4. LASIX [Concomitant]
  5. PROZAC [Concomitant]
  6. SYNTHOROID (LEVOTHYROXINE SODIUM) [Concomitant]
  7. XANAX [Concomitant]
  8. CATAPRES [Concomitant]
  9. TOPROL (METOPROLOL) [Concomitant]
  10. LOTENSIN (BENZAPERIL HYDROCHLORIDE) [Concomitant]
  11. NORVASC [Concomitant]
  12. ESTRACE [Concomitant]
  13. ZAROXOLYN [Concomitant]
  14. GLUCOTROL XL [Concomitant]
  15. TYLENOL W/ CODEINDE NO. 3 (COCEINE PHOSPHAE, PARACETAMOL) [Concomitant]
  16. VITAMIN E [Concomitant]
  17. OSCAL 500-D (CALCIUM, CALCIFEROL) [Concomitant]
  18. TOPROL XL (METOPROPROL SUCCINATE) [Concomitant]

REACTIONS (11)
  - ABASIA [None]
  - BACK PAIN [None]
  - CRYING [None]
  - DRUG INEFFECTIVE [None]
  - DYSSTASIA [None]
  - FALL [None]
  - MEMORY IMPAIRMENT [None]
  - MUSCULOSKELETAL STIFFNESS [None]
  - NAUSEA [None]
  - PAIN [None]
  - SOMNOLENCE [None]
